FAERS Safety Report 21478800 (Version 3)
Quarter: 2024Q1

REPORT INFORMATION
  Report Type: Spontaneous
  Country: US (occurrence: US)
  Receive Date: 20221019
  Receipt Date: 20240311
  Transmission Date: 20240410
  Serious: Yes (Other)
  Sender: FDA-Public Use
  Company Number: US-BAYER-2022A143219

PATIENT
  Age: 43 Year
  Sex: Female
  Weight: 65 kg

DRUGS (2)
  1. MIRENA [Suspect]
     Active Substance: LEVONORGESTREL
     Indication: Contraception
     Dosage: 20?G/DAY
     Route: 015
     Dates: start: 20171025, end: 20200821
  2. ZOLOFT [Concomitant]
     Active Substance: SERTRALINE HYDROCHLORIDE
     Dosage: 200 MG, QD
     Route: 048

REACTIONS (8)
  - Uterine perforation [Recovered/Resolved]
  - Device expulsion [Recovered/Resolved]
  - Hot flush [None]
  - Night sweats [None]
  - Weight increased [None]
  - Amenorrhoea [None]
  - Lymphadenopathy [None]
  - Device issue [None]

NARRATIVE: CASE EVENT DATE: 20200625
